FAERS Safety Report 9716918 (Version 3)
Quarter: 2015Q3

REPORT INFORMATION
  Report Type: Spontaneous
  Country: US (occurrence: US)
  Receive Date: 20131127
  Receipt Date: 20150803
  Transmission Date: 20151125
  Serious: No
  Sender: FDA-Public Use
  Company Number: US-GILEAD-2009-0019938

PATIENT
  Age: 44 Year
  Sex: Female
  Weight: 58.06 kg

DRUGS (12)
  1. LETAIRIS [Suspect]
     Active Substance: AMBRISENTAN
     Indication: PULMONARY ARTERIAL HYPERTENSION
     Route: 048
     Dates: start: 20081231
  2. TRAMADOL. [Concomitant]
     Active Substance: TRAMADOL
  3. POTASSIUM [Concomitant]
     Active Substance: POTASSIUM
  4. SANCTURA [Concomitant]
     Active Substance: TROSPIUM CHLORIDE
  5. REVATIO [Concomitant]
     Active Substance: SILDENAFIL CITRATE
  6. VESICARE [Concomitant]
     Active Substance: SOLIFENACIN SUCCINATE
  7. CYCLOBENZAPRINE [Concomitant]
     Active Substance: CYCLOBENZAPRINE
  8. ELMIRON [Concomitant]
     Active Substance: PENTOSAN POLYSULFATE SODIUM
  9. CALCIUM [Concomitant]
     Active Substance: CALCIUM
  10. PREDNISONE. [Concomitant]
     Active Substance: PREDNISONE
  11. HYDROCODONE/IBUPROFEN [Concomitant]
     Active Substance: HYDROCODONE\IBUPROFEN
  12. PRILOSEC [Concomitant]
     Active Substance: OMEPRAZOLE MAGNESIUM

REACTIONS (3)
  - Dry mouth [Unknown]
  - Nasal congestion [Unknown]
  - Epistaxis [Unknown]

NARRATIVE: CASE EVENT DATE: 20090102
